FAERS Safety Report 4277460-2 (Version None)
Quarter: 2004Q1

REPORT INFORMATION
  Report Type: 
  Country: None (occurrence: None)
  Receive Date: 20040122
  Receipt Date: 20031120
  Transmission Date: 20041129
  Serious: Yes (Hospitalization)
  Sender: FDA-Public Use
  Company Number: ES-ROCHE-352189

PATIENT
  Age: 47 Year
  Sex: Female
  Weight: 56 kg

DRUGS (10)
  1. MYCOPHENOLATE MOFETIL [Suspect]
     Route: 048
     Dates: start: 20031025
  2. MYCOPHENOLATE MOFETIL [Suspect]
     Route: 048
  3. DACLIZUMAB [Suspect]
     Route: 042
     Dates: start: 20031024
  4. CYCLOSPORINE [Suspect]
     Route: 048
     Dates: start: 20031025
  5. PREDNISONE [Suspect]
     Route: 048
     Dates: start: 20031024
  6. COTRIM [Concomitant]
     Route: 048
     Dates: start: 20031026
  7. OMEPRAZOL [Concomitant]
     Route: 048
     Dates: start: 20031024
  8. FUROSEMIDE [Concomitant]
     Route: 042
     Dates: start: 20031024
  9. GANCICLOVIR [Concomitant]
     Route: 048
     Dates: start: 20031026, end: 20040112
  10. SIMVASTATINE [Concomitant]
     Route: 048
     Dates: start: 20031217

REACTIONS (7)
  - ANAEMIA [None]
  - BLOOD CULTURE POSITIVE [None]
  - CARDIAC FAILURE CONGESTIVE [None]
  - ESCHERICHIA INFECTION [None]
  - LEUKOPENIA [None]
  - SEPSIS [None]
  - URINARY TRACT INFECTION [None]
